FAERS Safety Report 8620836-0 (Version None)
Quarter: 2012Q3

REPORT INFORMATION
  Report Type: 
  Country: None (occurrence: None)
  Receive Date: 20120824
  Receipt Date: 20120813
  Transmission Date: 20120928
  Serious: Yes (Disabling, Other)
  Sender: FDA-Public Use
  Company Number: US-JNJFOC-20120807854

PATIENT
  Sex: Female
  Weight: 65.77 kg

DRUGS (8)
  1. DURAGESIC-100 [Suspect]
     Dosage: 25 UG/HR+12.5 UG/HR
     Route: 062
     Dates: start: 20120501, end: 20120701
  2. DURAGESIC-100 [Suspect]
     Route: 062
     Dates: start: 20120701, end: 20120101
  3. DURAGESIC-100 [Suspect]
     Route: 062
     Dates: start: 20120101, end: 20120101
  4. EFFEXOR [Suspect]
     Indication: ANXIETY
     Route: 048
     Dates: start: 20120601, end: 20120601
  5. DURAGESIC-100 [Suspect]
     Route: 062
     Dates: start: 20090101, end: 20110801
  6. DURAGESIC-100 [Suspect]
     Indication: BACK INJURY
     Route: 062
     Dates: start: 20110801, end: 20120501
  7. DURAGESIC-100 [Suspect]
     Route: 062
     Dates: start: 20120101
  8. BACLOFEN [Suspect]
     Indication: PRODUCT USED FOR UNKNOWN INDICATION
     Route: 048
     Dates: start: 20110101, end: 20110101

REACTIONS (22)
  - PRESYNCOPE [None]
  - SENSORY DISTURBANCE [None]
  - HYPERSOMNIA [None]
  - DISABILITY [None]
  - INSOMNIA [None]
  - PNEUMONIA [None]
  - ANXIETY [None]
  - MENTAL IMPAIRMENT [None]
  - PYREXIA [None]
  - PAIN [None]
  - INJURY [None]
  - ABASIA [None]
  - PARINAUD SYNDROME [None]
  - CHILLS [None]
  - EYE DISORDER [None]
  - ADVERSE EVENT [None]
  - INFLAMMATION [None]
  - PAIN IN EXTREMITY [None]
  - CONFUSIONAL STATE [None]
  - PNEUMOTHORAX [None]
  - STRESS [None]
  - VOMITING PROJECTILE [None]
